FAERS Safety Report 9013551 (Version 2)
Quarter: 2013Q2

REPORT INFORMATION
  Report Type: Spontaneous
  Country: IE (occurrence: IE)
  Receive Date: 20130115
  Receipt Date: 20130403
  Transmission Date: 20140414
  Serious: Yes (Other)
  Sender: FDA-Public Use
  Company Number: PHFR2012IE005360

PATIENT
  Age: 64 Year
  Sex: Female

DRUGS (10)
  1. CLOZARIL [Suspect]
     Indication: SCHIZOPHRENIA
     Dosage: UNK
     Route: 048
     Dates: start: 20050919
  2. CLOZARIL [Suspect]
     Dosage: 450 MG DAILY DOSE
     Route: 048
     Dates: start: 20121105
  3. NUSEALS [Concomitant]
     Dosage: 75 MG, MANE
  4. ATENOLOL [Concomitant]
     Dosage: 25 MG, MANE
  5. VIT-C [Concomitant]
     Dosage: 1000 MG, MANE
  6. ESCITALOPRAM [Concomitant]
     Dosage: 20 MG, MANE
  7. LACTOLUS [Concomitant]
     Dosage: 10 ML, MANE
  8. MOTILIUM//DOMPERIDONE [Concomitant]
     Dosage: 10 MG, BID PRN
  9. MILPAR [Concomitant]
     Dosage: 10 ML, MANE
  10. EXPUTEX [Concomitant]
     Dosage: 10 ML, BID PRN

REACTIONS (5)
  - Respiratory tract infection [Recovered/Resolved]
  - Eosinophil count increased [Recovered/Resolved]
  - White blood cell count increased [Recovered/Resolved]
  - Neutrophil count increased [Recovered/Resolved]
  - Platelet count increased [Recovered/Resolved]
